FAERS Safety Report 14462423 (Version 2)
Quarter: 2018Q1

REPORT INFORMATION
  Report Type: Spontaneous
  Country: US (occurrence: US)
  Receive Date: 20180130
  Receipt Date: 20180228
  Transmission Date: 20180509
  Serious: No
  Sender: FDA-Public Use
  Company Number: US-ACTELION-A-US2018-166701

PATIENT
  Age: 71 Year
  Sex: Female
  Weight: 59.41 kg

DRUGS (1)
  1. OPSUMIT [Suspect]
     Active Substance: MACITENTAN
     Indication: PULMONARY ARTERIAL HYPERTENSION
     Dosage: 10 MG, QD
     Route: 048

REACTIONS (9)
  - Extra dose administered [Unknown]
  - Hypersensitivity [Unknown]
  - Insomnia [Unknown]
  - Throat irritation [Unknown]
  - Cough [Unknown]
  - Rhinorrhoea [Unknown]
  - Sinus disorder [Unknown]
  - Urinary tract infection [Unknown]
  - Nasal congestion [Unknown]

NARRATIVE: CASE EVENT DATE: 20180119
